FAERS Safety Report 9315277 (Version 1)
Quarter: 2013Q2

REPORT INFORMATION
  Report Type: Other
  Country: GB (occurrence: GB)
  Receive Date: 20130529
  Receipt Date: 20130529
  Transmission Date: 20140414
  Serious: Yes (Hospitalization)
  Sender: FDA-Public Use
  Company Number: GB-WATSON-2013-08925

PATIENT
  Age: 56 Year
  Sex: Male

DRUGS (1)
  1. ALENDRONATE SODIUM- (UNKNOWN) [Suspect]
     Indication: PRODUCT USED FOR UNKNOWN INDICATION
     Dosage: 70MG
     Route: 065

REACTIONS (1)
  - Osteonecrosis [Recovering/Resolving]
